FAERS Safety Report 19886360 (Version 4)
Quarter: 2022Q1

REPORT INFORMATION
  Report Type: Spontaneous
  Country: CZ (occurrence: CZ)
  Receive Date: 20210927
  Receipt Date: 20220217
  Transmission Date: 20220423
  Serious: Yes (Hospitalization)
  Sender: FDA-Public Use
  Company Number: None

PATIENT
  Age: 44 Year
  Sex: Male

DRUGS (5)
  1. ARIPIPRAZOLE [Suspect]
     Active Substance: ARIPIPRAZOLE
     Indication: Schizophrenia
     Dosage: WITH OLANZAPINE
  2. ESCITALOPRAM [Suspect]
     Active Substance: ESCITALOPRAM OXALATE
     Indication: Schizophrenia
     Dosage: WITH OLANZAPINE
  3. OLANZAPINE [Suspect]
     Active Substance: OLANZAPINE
     Indication: Schizophrenia
     Dosage: 20 MG DAILY
     Dates: start: 2020
  4. CARIPRAZINE [Suspect]
     Active Substance: CARIPRAZINE
     Indication: Schizophrenia
     Dosage: 6 MG DAILY WITH OLANZAPINE 20 MG
     Dates: start: 2020
  5. PALIPERIDONE PALMITATE [Suspect]
     Active Substance: PALIPERIDONE PALMITATE
     Indication: Schizophrenia
     Dosage: WITH OLANZAPINE, P. O. OR DEPOT
     Route: 048

REACTIONS (6)
  - Treatment noncompliance [Unknown]
  - Restlessness [Recovered/Resolved]
  - Weight increased [Recovering/Resolving]
  - Off label use [Unknown]
  - Therapeutic product effect incomplete [Unknown]
  - Treatment failure [Unknown]
